FAERS Safety Report 4577653-0 (Version None)
Quarter: 2005Q1

REPORT INFORMATION
  Report Type: 
  Country: None (occurrence: None)
  Receive Date: 20050127
  Receipt Date: 20041016
  Transmission Date: 20050727
  Serious: No
  Sender: FDA-Public Use
  Company Number: USA040876426

PATIENT
  Age: 27 Year
  Sex: Male

DRUGS (1)
  1. STRATTERA [Suspect]
     Indication: ATTENTION DEFICIT/HYPERACTIVITY DISORDER
     Dosage: 40 MG IN THE EVENING
     Dates: start: 20040819

REACTIONS (5)
  - ERECTION INCREASED [None]
  - INSOMNIA [None]
  - NAUSEA [None]
  - PAINFUL ERECTION [None]
  - TESTICULAR PAIN [None]
